FAERS Safety Report 8387321-5 (Version None)
Quarter: 2012Q2

REPORT INFORMATION
  Report Type: 
  Country: None (occurrence: None)
  Receive Date: 20120525
  Receipt Date: 20120520
  Transmission Date: 20120825
  Serious: Yes (Death)
  Sender: FDA-Public Use
  Company Number: DZ-ROCHE-1071945

PATIENT
  Sex: Female

DRUGS (2)
  1. AVASTIN [Suspect]
     Indication: OVARIAN CANCER
     Route: 042
     Dates: end: 20120422
  2. TAXOL [Suspect]
     Indication: OVARIAN CANCER
     Route: 042
     Dates: end: 20120422

REACTIONS (4)
  - INFECTION [None]
  - CONVULSION [None]
  - VOMITING [None]
  - DEHYDRATION [None]
